FAERS Safety Report 9856524 (Version 1)
Quarter: 2014Q1

REPORT INFORMATION
  Report Type: Spontaneous
  Country: US (occurrence: US)
  Receive Date: 20140130
  Receipt Date: 20140130
  Transmission Date: 20141002
  Serious: Yes (Other)
  Sender: FDA-Public Use
  Company Number: US-BAYER-2014-014299

PATIENT
  Age: 60 Year
  Sex: Female
  Weight: 89.8 kg

DRUGS (2)
  1. RID SHAMPOO [Suspect]
     Dosage: UNK
     Route: 061
     Dates: start: 20131223
  2. ADVAIR [Concomitant]

REACTIONS (2)
  - Rash [Not Recovered/Not Resolved]
  - Dyspnoea [Recovered/Resolved]
